FAERS Safety Report 18095701 (Version 1)
Quarter: 2020Q3

REPORT INFORMATION
  Report Type: Spontaneous
  Country: US (occurrence: US)
  Receive Date: 20200730
  Receipt Date: 20200730
  Transmission Date: 20201103
  Serious: No
  Sender: FDA-Public Use
  Company Number: US-PFIZER INC-2020289947

PATIENT
  Age: 83 Year
  Sex: Female
  Weight: 71.67 kg

DRUGS (1)
  1. IBRANCE [Suspect]
     Active Substance: PALBOCICLIB
     Indication: BREAST CANCER
     Dosage: 125 MG, CYCLIC (125MG; ONCE A DAY FOR 3 WEEKS AND 7 DAYS WITH NONE)
     Dates: start: 2020

REACTIONS (2)
  - Lymphoedema [Recovering/Resolving]
  - Limb discomfort [Unknown]

NARRATIVE: CASE EVENT DATE: 2020
